FAERS Safety Report 5334138-1 (Version None)
Quarter: 2007Q2

REPORT INFORMATION
  Report Type: 
  Country: None (occurrence: None)
  Receive Date: 20070308
  Receipt Date: 20070116
  Transmission Date: 20071010
  Serious: No
  Sender: FDA-Public Use
  Company Number: 2006-BP-05912BP

PATIENT
  Sex: Female

DRUGS (2)
  1. SPIRIVA [Suspect]
     Dosage: NR (18 MCG), IH
     Route: 055
  2. SPIRIVA [Suspect]

REACTIONS (1)
  - NASOPHARYNGITIS [None]
